FAERS Safety Report 9619815 (Version 2)
Quarter: 2013Q4

REPORT INFORMATION
  Report Type: Spontaneous
  Country: SE (occurrence: SE)
  Receive Date: 20131014
  Receipt Date: 20131014
  Transmission Date: 20140711
  Serious: Yes (Other)
  Sender: FDA-Public Use
  Company Number: SE-ROCHE-1253142

PATIENT
  Age: 86 Year
  Sex: Female

DRUGS (2)
  1. AVASTIN [Suspect]
     Indication: MACULAR DEGENERATION
     Dosage: 25 MG/ML
     Route: 050
     Dates: start: 20130718, end: 20130718
  2. NITROGLYCERIN [Concomitant]

REACTIONS (4)
  - Chest pain [Recovered/Resolved]
  - Angina pectoris [Recovered/Resolved]
  - Discomfort [Recovered/Resolved]
  - Chest discomfort [Recovered/Resolved]
